FAERS Safety Report 5288060-X (Version None)
Quarter: 2007Q2

REPORT INFORMATION
  Report Type: 
  Country: None (occurrence: None)
  Receive Date: 20070405
  Receipt Date: 20070403
  Transmission Date: 20071010
  Serious: Yes (Death, Hospitalization, Other)
  Sender: FDA-Public Use
  Company Number: US-BRISTOL-MYERS SQUIBB COMPANY-13691779

PATIENT
  Age: 53 Year
  Sex: Female

DRUGS (1)
  1. SPRYCEL [Suspect]
     Indication: GASTROINTESTINAL STROMAL TUMOUR
     Dates: start: 20060801, end: 20060810

REACTIONS (6)
  - ANAEMIA [None]
  - ASTHENIA [None]
  - HAEMORRHAGE [None]
  - HYPOTENSION [None]
  - SHOCK [None]
  - TUMOUR HAEMORRHAGE [None]
